FAERS Safety Report 9889842 (Version 2)
Quarter: 2014Q2

REPORT INFORMATION
  Report Type: Report from Study
  Country: US (occurrence: US)
  Receive Date: 20140212
  Receipt Date: 20140404
  Transmission Date: 20141212
  Serious: Yes (Other)
  Sender: FDA-Public Use
  Company Number: US-ABBVIE-14P-163-1198897-00

PATIENT
  Age: 36 Year
  Sex: Female
  Weight: 58.11 kg

DRUGS (6)
  1. LUPRON DEPOT [Suspect]
     Indication: ENDOMETRIOSIS
     Dates: start: 200703
  2. LUPRON DEPOT [Suspect]
     Indication: INFERTILITY
     Dates: start: 20131223
  3. LUPRON DEPOT [Suspect]
     Indication: ENDOMETRIOSIS
     Dates: start: 20131223
  4. LUPRON DEPOT [Suspect]
     Indication: INFERTILITY
  5. ALLEGRA [Concomitant]
     Indication: PRODUCT USED FOR UNKNOWN INDICATION
     Dosage: PILL
  6. CALCIUM AND BONE SUPPLEMENTS [Concomitant]
     Indication: MINERAL SUPPLEMENTATION

REACTIONS (13)
  - Ovarian cyst [Unknown]
  - Ovarian cyst ruptured [Unknown]
  - Hot flush [Recovered/Resolved]
  - Endometriosis [Unknown]
  - Back pain [Not Recovered/Not Resolved]
  - Pelvic pain [Not Recovered/Not Resolved]
  - Haemorrhage [Recovered/Resolved]
  - Haemorrhage [Recovered/Resolved]
  - Hot flush [Not Recovered/Not Resolved]
  - Night sweats [Unknown]
  - Insomnia [Unknown]
  - Anxiety [Unknown]
  - Heart rate increased [Not Recovered/Not Resolved]
